FAERS Safety Report 18643353 (Version 1)
Quarter: 2020Q4

REPORT INFORMATION
  Report Type: Spontaneous
  Country: ES (occurrence: ES)
  Receive Date: 20201221
  Receipt Date: 20201221
  Transmission Date: 20210114
  Serious: Yes (Other)
  Sender: FDA-Public Use
  Company Number: ES-TEVA-2018-ES-912068

PATIENT
  Age: 54 Year
  Sex: Male

DRUGS (3)
  1. PROCARBAZINA HIDROCLORURO (651CH) [Suspect]
     Active Substance: PROCARBAZINE HYDROCHLORIDE
     Indication: OLIGODENDROGLIOMA
     Route: 048
     Dates: start: 20180220, end: 20180306
  2. LOMUSTINA (378A) [Concomitant]
     Active Substance: LOMUSTINE
     Indication: OLIGODENDROGLIOMA
     Route: 048
     Dates: start: 20180212
  3. VINCRISTINA SULFATO (809SU) [Suspect]
     Active Substance: VINCRISTINE SULFATE
     Indication: OLIGODENDROGLIOMA
     Route: 042
     Dates: start: 20180220, end: 20180314

REACTIONS (1)
  - Hypertransaminasaemia [Recovering/Resolving]

NARRATIVE: CASE EVENT DATE: 20180323
